FAERS Safety Report 6601922-3 (Version None)
Quarter: 2010Q1

REPORT INFORMATION
  Report Type: 
  Country: None (occurrence: None)
  Receive Date: 20100225
  Receipt Date: 20100215
  Transmission Date: 20100710
  Serious: Yes (Death)
  Sender: FDA-Public Use
  Company Number: US-JNJFOC-20090105458

PATIENT
  Sex: Male
  Weight: 81.19 kg

DRUGS (7)
  1. FENTANYL [Suspect]
     Indication: DRUG USE FOR UNKNOWN INDICATION
     Route: 062
  2. MORPHINE [Suspect]
     Indication: DRUG USE FOR UNKNOWN INDICATION
  3. PENTOBARBITAL CAP [Suspect]
     Indication: DRUG USE FOR UNKNOWN INDICATION
  4. DIPHENHYDRAMINE [Suspect]
     Indication: DRUG USE FOR UNKNOWN INDICATION
  5. SERTRALINE HCL [Suspect]
     Indication: DRUG USE FOR UNKNOWN INDICATION
  6. HYDROXYZINE [Suspect]
     Indication: DRUG USE FOR UNKNOWN INDICATION
  7. DIAZEPAM [Suspect]
     Indication: DRUG USE FOR UNKNOWN INDICATION

REACTIONS (2)
  - COMPLETED SUICIDE [None]
  - MULTIPLE DRUG OVERDOSE [None]
